FAERS Safety Report 6710130-7 (Version None)
Quarter: 2010Q2

REPORT INFORMATION
  Report Type: 
  Country: None (occurrence: None)
  Receive Date: 20100430
  Receipt Date: 20100421
  Transmission Date: 20101027
  Serious: Yes (Hospitalization)
  Sender: FDA-Public Use
  Company Number: 7002027

PATIENT
  Age: 66 Year
  Sex: Female

DRUGS (6)
  1. L-THYROXIN (LEVOTHYROXINE) (TABLET) (LEVOTHYROXINE, LEVOTHYROXINE SODI [Suspect]
     Indication: HYPOTHYROIDISM
     Dosage: 50 MCG (50 MCG, 1 IN 1 D) ORAL
     Route: 048
     Dates: start: 19810101
  2. FLECAINIDE (FLECAINIDE) (TABLET) (FLECAINIDE) [Suspect]
     Indication: TACHYARRHYTHMIA
     Dosage: 100 MG (50 MG, 2 IN 1 D), 200 MG (100 MG, 2 IN 1 D), ORAL
     Route: 048
     Dates: start: 20050101, end: 20090513
  3. FLECAINIDE (FLECAINIDE) (TABLET) (FLECAINIDE) [Suspect]
     Indication: TACHYARRHYTHMIA
     Dosage: 100 MG (50 MG, 2 IN 1 D), 200 MG (100 MG, 2 IN 1 D), ORAL
     Route: 048
     Dates: start: 20090514, end: 20090514
  4. FALITHROM (PHENPROCOUMON) (TABLET) [Concomitant]
  5. METOPROLOL (TABLET) (METOPROLOL) [Concomitant]
  6. BENALAPRIL (ENALAPRIL MALEATE) (TABLET) [Concomitant]

REACTIONS (5)
  - ATRIAL FIBRILLATION [None]
  - CONDITION AGGRAVATED [None]
  - PALPITATIONS [None]
  - SELF-MEDICATION [None]
  - TACHYARRHYTHMIA [None]
